FAERS Safety Report 5730436-8 (Version None)
Quarter: 2008Q2

REPORT INFORMATION
  Report Type: 
  Country: None (occurrence: None)
  Receive Date: 20080507
  Receipt Date: 20080428
  Transmission Date: 20081010
  Serious: Yes (Hospitalization, Other)
  Sender: FDA-Public Use
  Company Number: US-AMGEN-QUU276538

PATIENT
  Sex: Male
  Weight: 87.2 kg

DRUGS (6)
  1. ARANESP [Suspect]
     Indication: DRUG USE FOR UNKNOWN INDICATION
     Route: 058
  2. THALIDOMIDE [Suspect]
     Route: 048
     Dates: start: 20070111, end: 20070202
  3. ALLOPURINOL [Suspect]
  4. DECADRON [Suspect]
     Dates: start: 20070111
  5. ASPIRIN [Suspect]
  6. AREDIA [Concomitant]

REACTIONS (7)
  - BLOOD PRESSURE INCREASED [None]
  - BODY TEMPERATURE INCREASED [None]
  - FLUID RETENTION [None]
  - HEADACHE [None]
  - RASH [None]
  - REVERSIBLE POSTERIOR LEUKOENCEPHALOPATHY SYNDROME [None]
  - SWELLING FACE [None]
